FAERS Safety Report 12565208 (Version 1)
Quarter: 2016Q3

REPORT INFORMATION
  Report Type: Spontaneous
  Country: US (occurrence: None)
  Receive Date: 20160715
  Receipt Date: 20160715
  Transmission Date: 20161109
  Serious: Yes (Other)
  Sender: FDA-Public Use
  Company Number: None

PATIENT
  Age: 56 Year
  Sex: Male
  Weight: 106 kg

DRUGS (1)
  1. ENOXAPRIN, 40MG TEVA/ITALFARACO [Suspect]
     Active Substance: ENOXAPARIN
     Indication: THROMBOSIS PROPHYLAXIS
     Route: 058
     Dates: start: 20160710, end: 20160714

REACTIONS (2)
  - Drug effect increased [None]
  - Haemorrhage [None]

NARRATIVE: CASE EVENT DATE: 20160714
